FAERS Safety Report 22399365 (Version 1)
Quarter: 2023Q2

REPORT INFORMATION
  Report Type: Spontaneous
  Country: ID (occurrence: ID)
  Receive Date: 20230602
  Receipt Date: 20230602
  Transmission Date: 20230722
  Serious: Yes (Other)
  Sender: FDA-Public Use
  Company Number: ID-SUN PHARMACEUTICAL INDUSTRIES LTD-2023RR-391859

PATIENT
  Age: 49 Year
  Sex: Male

DRUGS (6)
  1. OXALIPLATIN [Suspect]
     Active Substance: OXALIPLATIN
     Indication: Hepatic cancer
     Dosage: 3 TIMES A WEEK FOR 8 CYCLES
     Route: 065
  2. CAPECITABINE [Suspect]
     Active Substance: CAPECITABINE
     Indication: Adenocarcinoma
     Dosage: UNK
     Route: 065
  3. LEUCOVORIN CALCIUM [Suspect]
     Active Substance: LEUCOVORIN CALCIUM
     Indication: Adenocarcinoma
     Dosage: EVERY 3 WEEKS FOR 12 CYCLES
     Route: 065
  4. IRINOTECAN [Suspect]
     Active Substance: IRINOTECAN
     Indication: Adenocarcinoma
     Dosage: EVERY 3 WEEKS FOR 12 CYCLES
     Route: 065
  5. XELODA [Suspect]
     Active Substance: CAPECITABINE
     Indication: Hepatic cancer
     Dosage: 3 TIMES A WEEK FOR 8 CYCLES
     Route: 065
  6. FLUOROURACIL [Suspect]
     Active Substance: FLUOROURACIL
     Indication: Adenocarcinoma
     Dosage: EVERY 3 WEEKS FOR 12 CYCLES
     Route: 065

REACTIONS (7)
  - Drug ineffective [Unknown]
  - Encephalopathy [Unknown]
  - Cerebrovascular accident [Unknown]
  - Nausea [Unknown]
  - Hemiparesis [Unknown]
  - Loss of consciousness [Unknown]
  - Acute kidney injury [Unknown]
